FAERS Safety Report 14267122 (Version 15)
Quarter: 2025Q4

REPORT INFORMATION
  Report Type: Spontaneous
  Country: US (occurrence: US)
  Receive Date: 20171211
  Receipt Date: 20251006
  Transmission Date: 20260117
  Serious: Yes (Other)
  Sender: PFIZER
  Company Number: US-PFIZER INC-2017524770

PATIENT
  Age: 57 Year
  Sex: Female
  Weight: 79 kg

DRUGS (2)
  1. XELJANZ XR [Suspect]
     Active Substance: TOFACITINIB CITRATE
     Indication: Rheumatoid arthritis
     Dosage: 11 MG, 1X/DAY
     Route: 048
     Dates: start: 2016, end: 201803
  2. XELJANZ XR [Suspect]
     Active Substance: TOFACITINIB CITRATE
     Indication: Ankylosing spondylitis
     Dosage: 11 MG
     Route: 048

REACTIONS (10)
  - Road traffic accident [Unknown]
  - Carpal tunnel syndrome [Recovering/Resolving]
  - Pain [Not Recovered/Not Resolved]
  - Mobility decreased [Recovering/Resolving]
  - Toothache [Recovering/Resolving]
  - Condition aggravated [Unknown]
  - Illness [Unknown]
  - Sensitivity to weather change [Unknown]
  - Injury [Unknown]
  - Pain in extremity [Unknown]

NARRATIVE: CASE EVENT DATE: 20180301
